FAERS Safety Report 15990657 (Version 2)
Quarter: 2019Q1

REPORT INFORMATION
  Report Type: Spontaneous
  Country: IR (occurrence: IR)
  Receive Date: 20190221
  Receipt Date: 20190226
  Transmission Date: 20190418
  Serious: Yes (Life-Threatening, Hospitalization)
  Sender: FDA-Public Use
  Company Number: PHHY2019IR039973

PATIENT
  Sex: Female

DRUGS (1)
  1. IMIPRAMINE [Suspect]
     Active Substance: IMIPRAMINE
     Indication: PRODUCT USED FOR UNKNOWN INDICATION
     Route: 065

REACTIONS (11)
  - Asthenia [Unknown]
  - Ventricular fibrillation [Recovering/Resolving]
  - Toxicity to various agents [Unknown]
  - Hypotension [Unknown]
  - Lethargy [Unknown]
  - Drop attacks [Unknown]
  - Tachycardia [Unknown]
  - Arrhythmia [Recovering/Resolving]
  - Supraventricular tachycardia [Recovering/Resolving]
  - Palpitations [Unknown]
  - Loss of consciousness [Unknown]
